FAERS Safety Report 5655735-X (Version None)
Quarter: 2008Q1

REPORT INFORMATION
  Report Type: 
  Country: None (occurrence: None)
  Receive Date: 20080307
  Receipt Date: 20080227
  Transmission Date: 20080703
  Serious: Yes (Life-Threatening, Hospitalization)
  Sender: FDA-Public Use
  Company Number: FI-PFIZER INC-2007023973

PATIENT
  Sex: Male
  Weight: 79 kg

DRUGS (10)
  1. SU-011,248 [Suspect]
     Indication: RENAL CANCER METASTATIC
     Route: 048
     Dates: start: 20070302, end: 20070322
  2. ACETAMINOPHEN [Concomitant]
     Route: 048
  3. FENTANYL [Concomitant]
     Route: 062
     Dates: start: 20070126, end: 20070329
  4. AGIOCUR [Concomitant]
     Route: 048
  5. LAXOBERON [Concomitant]
     Route: 048
  6. PANTOPRAZOLE [Concomitant]
     Route: 048
  7. CITALOPRAM HYDROBROMIDE [Concomitant]
     Route: 048
     Dates: start: 20070204, end: 20070329
  8. OXAZEPAM [Concomitant]
     Route: 048
  9. TEMAZEPAM [Concomitant]
     Route: 048
  10. METOCLOPRAMIDE [Concomitant]
     Route: 048
     Dates: start: 20070319, end: 20070320

REACTIONS (17)
  - ALANINE AMINOTRANSFERASE INCREASED [None]
  - ASPARTATE AMINOTRANSFERASE INCREASED [None]
  - BLOOD ALKALINE PHOSPHATASE INCREASED [None]
  - BLOOD LACTATE DEHYDROGENASE INCREASED [None]
  - CONDITION AGGRAVATED [None]
  - HAEMOGLOBIN DECREASED [None]
  - HYPOALBUMINAEMIA [None]
  - HYPONATRAEMIA [None]
  - IDIOPATHIC THROMBOCYTOPENIC PURPURA [None]
  - LEUKOPENIA [None]
  - LIVER FUNCTION TEST ABNORMAL [None]
  - METASTASES TO BONE [None]
  - METASTASES TO LUNG [None]
  - METASTASES TO SPINE [None]
  - NAUSEA [None]
  - PYREXIA [None]
  - STOMATITIS [None]
